FAERS Safety Report 9749189 (Version 2)
Quarter: 2014Q1

REPORT INFORMATION
  Report Type: Spontaneous
  Country: US (occurrence: US)
  Receive Date: 20131212
  Receipt Date: 20140312
  Transmission Date: 20141002
  Serious: No
  Sender: FDA-Public Use
  Company Number: US-INCYTE CORPORATION-2013IN002395

PATIENT
  Sex: Female
  Weight: 54.42 kg

DRUGS (2)
  1. JAKAFI [Suspect]
     Indication: MYELOFIBROSIS
     Dosage: 15 MG, BID
     Route: 048
     Dates: start: 201307
  2. LOSARTAN POTASSIUM [Concomitant]

REACTIONS (3)
  - Memory impairment [Unknown]
  - Rash [Unknown]
  - Depression [Unknown]
